FAERS Safety Report 8095902-1 (Version None)
Quarter: 2012Q1

REPORT INFORMATION
  Report Type: 
  Country: None (occurrence: None)
  Receive Date: 20120129
  Receipt Date: 20111214
  Transmission Date: 20120608
  Serious: No
  Sender: FDA-Public Use
  Company Number: US-ABBOTT-11P-163-0883431-00

PATIENT
  Age: 41 Year
  Sex: Female

DRUGS (3)
  1. SAVELLA [Concomitant]
     Indication: FIBROMYALGIA
  2. SYNTHROID [Concomitant]
     Indication: PRODUCT USED FOR UNKNOWN INDICATION
  3. HUMIRA [Suspect]
     Indication: PSORIASIS
     Dates: start: 20111130

REACTIONS (1)
  - NASOPHARYNGITIS [None]
